FAERS Safety Report 6291518-8 (Version None)
Quarter: 2009Q3

REPORT INFORMATION
  Report Type: 
  Country: None (occurrence: None)
  Receive Date: 20090730
  Receipt Date: 20090722
  Transmission Date: 20100115
  Serious: Yes (Other)
  Sender: FDA-Public Use
  Company Number: US-SANOFI-SYNTHELABO-A03200902346

PATIENT
  Sex: Male
  Weight: 96.2 kg

DRUGS (1)
  1. PLAVIX [Suspect]
     Indication: TRIGEMINAL NEURALGIA
     Route: 048
     Dates: start: 20070201, end: 20070701

REACTIONS (1)
  - DEEP VEIN THROMBOSIS [None]
